FAERS Safety Report 7827194-X (Version None)
Quarter: 2011Q4

REPORT INFORMATION
  Report Type: 
  Country: None (occurrence: None)
  Receive Date: 20111019
  Receipt Date: 20111019
  Transmission Date: 20120403
  Serious: No
  Sender: FDA-Public Use
  Company Number: None

PATIENT
  Sex: Female
  Weight: 68.0396 kg

DRUGS (1)
  1. CEPHALEXIN [Suspect]
     Indication: URINARY TRACT INFECTION
     Dosage: 2 CAP 2X A DAY 500MG ORAL
     Route: 048
     Dates: start: 20110919

REACTIONS (5)
  - PALPITATIONS [None]
  - BLOOD PRESSURE INCREASED [None]
  - DIZZINESS [None]
  - ASTHENIA [None]
  - DYSPNOEA [None]
